FAERS Safety Report 9559839 (Version 1)
Quarter: 2013Q3

REPORT INFORMATION
  Report Type: Spontaneous
  Country: AU (occurrence: None)
  Receive Date: 20130925
  Receipt Date: 20130925
  Transmission Date: 20140515
  Serious: Yes (Death, Hospitalization)
  Sender: FDA-Public Use
  Company Number: 1913551

PATIENT
  Age: 67 Year
  Sex: Male

DRUGS (22)
  1. OXALIPLATIN [Suspect]
     Indication: COLON CANCER
     Route: 042
     Dates: start: 20130212
  2. FLUOROURACIL [Suspect]
     Indication: COLON CANCER
     Route: 042
     Dates: start: 20130212, end: 20130702
  3. BEVACIZUMAB [Concomitant]
  4. CALCIUM FOLINATE [Concomitant]
  5. COLECALIFEROL [Concomitant]
  6. CHLORHEXIDINE [Concomitant]
  7. BUDESONIDE W/FORMOTEROL FUMARATE [Concomitant]
  8. TIOTROPIUM BROMIDE MONOHYDRATE [Concomitant]
  9. ESOMEPAZOLE MAGNESIUM [Concomitant]
  10. OXYCODONE HYDROCHLORIDE [Concomitant]
  11. PARACETAMOL [Concomitant]
  12. FENTANYL [Concomitant]
  13. DOCUSATE SODIUM [Concomitant]
  14. DEXAMETHASONE [Concomitant]
  15. BIOTENE DRY MOUTH [Concomitant]
  16. FLUCONAZOLE [Concomitant]
  17. NYSTATIN [Concomitant]
  18. ALUMINIUM [Concomitant]
  19. MAGNESIUM HYDROXIDE [Concomitant]
  20. SIMETICONE [Concomitant]
  21. OXYCODONE HYDROCHLORIDE [Concomitant]
  22. SENNOSIDES A AND B [Concomitant]

REACTIONS (15)
  - Pneumonia [None]
  - Mucosal inflammation [None]
  - Sepsis [None]
  - Mouth ulceration [None]
  - Streptococcus test positive [None]
  - Blood chloride decreased [None]
  - Haematocrit decreased [None]
  - Haemoglobin decreased [None]
  - Neutrophil count decreased [None]
  - Blood sodium decreased [None]
  - Red blood cell count decreased [None]
  - N-terminal prohormone brain natriuretic peptide increased [None]
  - Blood albumin decreased [None]
  - Blood creatinine decreased [None]
  - Emphysema [None]
